FAERS Safety Report 22148149 (Version 1)
Quarter: 2023Q1

REPORT INFORMATION
  Report Type: Spontaneous
  Country: IT (occurrence: IT)
  Receive Date: 20230328
  Receipt Date: 20230328
  Transmission Date: 20230417
  Serious: Yes (Hospitalization)
  Sender: FDA-Public Use
  Company Number: IT-MYLANLABS-2023M1031882

PATIENT
  Age: 11 Year
  Sex: Male

DRUGS (12)
  1. PREDNISONE [Suspect]
     Active Substance: PREDNISONE
     Indication: Precursor T-lymphoblastic lymphoma/leukaemia stage III
     Dosage: 60 MILLIGRAM/SQ. METER, QD
     Route: 042
     Dates: start: 2020
  2. PREDNISONE [Suspect]
     Active Substance: PREDNISONE
     Indication: Precursor T-lymphoblastic lymphoma/leukaemia stage III
     Dosage: 60 MILLIGRAM/SQ. METER, QD
     Route: 048
     Dates: start: 2020
  3. VINCRISTINE [Suspect]
     Active Substance: VINCRISTINE
     Indication: Precursor T-lymphoblastic lymphoma/leukaemia stage III
     Dosage: 1.5 MILLIGRAM/SQ. METER, QD
     Route: 042
     Dates: start: 2020
  4. VINCRISTINE [Suspect]
     Active Substance: VINCRISTINE
     Dosage: 2 MILLIGRAM/SQ. METER, QD
     Route: 042
     Dates: start: 2020
  5. DAUNORUBICIN [Suspect]
     Active Substance: DAUNORUBICIN
     Indication: Precursor T-lymphoblastic lymphoma/leukaemia stage III
     Dosage: 30 MILLIGRAM/SQ. METER, QD, FOR 1H DAILY
     Route: 042
     Dates: start: 202010
  6. PEGASPARGASE [Suspect]
     Active Substance: PEGASPARGASE
     Indication: Precursor T-lymphoblastic lymphoma/leukaemia stage III
     Dosage: UNK, QD, 2500 U/M2 FOR 1H DAILY
     Route: 042
     Dates: start: 202010
  7. CYCLOPHOSPHAMIDE [Suspect]
     Active Substance: CYCLOPHOSPHAMIDE
     Indication: Precursor T-lymphoblastic lymphoma/leukaemia stage III
     Dosage: 1000 MILLIGRAM/SQ. METER, QD, FOR 1H DAILY
     Route: 042
     Dates: start: 202010
  8. CYTARABINE [Suspect]
     Active Substance: CYTARABINE
     Indication: Precursor T-lymphoblastic lymphoma/leukaemia stage III
     Dosage: 75 MILLIGRAM/SQ. METER, QD
     Route: 042
     Dates: start: 202010
  9. MERCAPTOPURINE [Suspect]
     Active Substance: MERCAPTOPURINE
     Indication: Precursor T-lymphoblastic lymphoma/leukaemia stage III
     Dosage: 60 MILLIGRAM/SQ. METER, QD
     Route: 048
     Dates: start: 202010
  10. METHOTREXATE [Suspect]
     Active Substance: METHOTREXATE
     Indication: Precursor T-lymphoblastic lymphoma/leukaemia stage III
     Dosage: UNK
     Route: 037
     Dates: start: 202010
  11. SULFAMETHOXAZOLE\TRIMETHOPRIM [Concomitant]
     Active Substance: SULFAMETHOXAZOLE\TRIMETHOPRIM
     Indication: Antibiotic prophylaxis
     Dosage: UNK
     Route: 065
     Dates: start: 2020
  12. ACYCLOVIR [Concomitant]
     Active Substance: ACYCLOVIR
     Indication: Antibiotic prophylaxis
     Dosage: UNK
     Route: 065
     Dates: start: 2020

REACTIONS (1)
  - COVID-19 [Unknown]

NARRATIVE: CASE EVENT DATE: 20200101
